FAERS Safety Report 11988892 (Version 1)
Quarter: 2016Q1

REPORT INFORMATION
  Report Type: Spontaneous
  Country: SN (occurrence: SN)
  Receive Date: 20160202
  Receipt Date: 20160202
  Transmission Date: 20160526
  Serious: Yes (Other)
  Sender: FDA-Public Use
  Company Number: SN-MYLANLABS-2016M1004120

PATIENT

DRUGS (3)
  1. PREDNISONE. [Concomitant]
     Active Substance: PREDNISONE
     Indication: BILIARY CIRRHOSIS PRIMARY
     Dosage: 10 MG/DAY
     Route: 065
  2. AZATHIOPRINE. [Suspect]
     Active Substance: AZATHIOPRINE
     Indication: BILIARY CIRRHOSIS PRIMARY
     Dosage: 50 MG/DAY
     Route: 065
  3. URSODEOXYCHOLIC ACID [Suspect]
     Active Substance: URSODIOL
     Indication: BILIARY CIRRHOSIS PRIMARY
     Dosage: 800 MG/DAY
     Route: 065

REACTIONS (5)
  - Drug resistance [Recovered/Resolved]
  - Drug ineffective [Recovered/Resolved]
  - Pancytopenia [Recovered/Resolved]
  - Abdominal pain [Recovered/Resolved]
  - Retroperitoneal haematoma [Recovered/Resolved]

NARRATIVE: CASE EVENT DATE: 201106
